FAERS Safety Report 20070610 (Version 1)
Quarter: 2021Q4

REPORT INFORMATION
  Report Type: Report from Study
  Country: US (occurrence: US)
  Receive Date: 20211115
  Receipt Date: 20211115
  Transmission Date: 20220303
  Serious: Yes (Other)
  Sender: FDA-Public Use
  Company Number: US-IGSA-BIG0016669

PATIENT
  Age: 58 Year
  Sex: Female
  Weight: 96 kg

DRUGS (2)
  1. PROLASTIN-C LIQUID [Suspect]
     Active Substance: .ALPHA.1-PROTEINASE INHIBITOR HUMAN
     Indication: Alpha-1 antitrypsin deficiency
     Dosage: 60 MILLIGRAM/KILOGRAM, Q.WK.
     Route: 042
     Dates: start: 20211109, end: 20211109
  2. PROLASTIN-C LIQUID [Suspect]
     Active Substance: .ALPHA.1-PROTEINASE INHIBITOR HUMAN
     Dosage: 60 MILLIGRAM/KILOGRAM, Q.WK.
     Route: 042
     Dates: start: 20171116, end: 20211109

REACTIONS (5)
  - Bronchospasm [Recovering/Resolving]
  - Cough [Recovering/Resolving]
  - Secretion discharge [Recovering/Resolving]
  - Palpitations [Recovering/Resolving]
  - Migraine [Recovering/Resolving]

NARRATIVE: CASE EVENT DATE: 20211109
